FAERS Safety Report 4509825-5 (Version None)
Quarter: 2004Q4

REPORT INFORMATION
  Report Type: 
  Country: None (occurrence: None)
  Receive Date: 20041119
  Receipt Date: 20041028
  Transmission Date: 20050328
  Serious: Yes (Hospitalization, Other)
  Sender: FDA-Public Use
  Company Number: USA041082656

PATIENT
  Age: 69 Year
  Sex: Female
  Weight: 118 kg

DRUGS (4)
  1. HUMALOG [Suspect]
     Dates: start: 20040101
  2. HUMULIN 70/30 [Suspect]
     Dosage: 40 U DAY
  3. PREDNISONE [Concomitant]
  4. DILANTIN [Concomitant]

REACTIONS (12)
  - ASTHENIA [None]
  - BLOOD GLUCOSE INCREASED [None]
  - CEREBRAL DISORDER [None]
  - CEREBROVASCULAR ACCIDENT [None]
  - COMA [None]
  - CONVULSION [None]
  - DYSGRAPHIA [None]
  - EYE DISORDER [None]
  - INFLAMMATION [None]
  - OXYGEN SATURATION DECREASED [None]
  - RENAL CELL CARCINOMA STAGE UNSPECIFIED [None]
  - SPEECH DISORDER [None]
